FAERS Safety Report 8175407-X (Version None)
Quarter: 2012Q1

REPORT INFORMATION
  Report Type: 
  Country: None (occurrence: None)
  Receive Date: 20120229
  Receipt Date: 20120220
  Transmission Date: 20120608
  Serious: Yes (Other)
  Sender: FDA-Public Use
  Company Number: FR-ASTRAZENECA-2012SE11961

PATIENT
  Age: 18125 Day
  Sex: Female

DRUGS (7)
  1. VANCOMYCIN [Suspect]
     Route: 042
     Dates: start: 20110921, end: 20110921
  2. KETAMINE HYDROCHLORIDE [Suspect]
     Indication: INDUCTION OF ANAESTHESIA
     Route: 042
     Dates: start: 20110921, end: 20110921
  3. OMEPRAZOLE [Concomitant]
  4. SUFENTA PRESERVATIVE FREE [Suspect]
     Indication: INDUCTION OF ANAESTHESIA
     Route: 042
     Dates: start: 20110921, end: 20110921
  5. MIDAZOLAM HCL [Suspect]
     Indication: INDUCTION OF ANAESTHESIA
     Route: 042
     Dates: start: 20110921, end: 20110921
  6. DIPRIVAN [Suspect]
     Indication: INDUCTION OF ANAESTHESIA
     Route: 042
     Dates: start: 20110921, end: 20110921
  7. TRACRIUM [Suspect]
     Indication: INDUCTION OF ANAESTHESIA
     Route: 042
     Dates: start: 20110921, end: 20110921

REACTIONS (1)
  - ANAPHYLACTIC SHOCK [None]
